FAERS Safety Report 7094220-8 (Version None)
Quarter: 2010Q4

REPORT INFORMATION
  Report Type: 
  Country: None (occurrence: None)
  Receive Date: 20101110
  Receipt Date: 20101104
  Transmission Date: 20110411
  Serious: Yes (Hospitalization)
  Sender: FDA-Public Use
  Company Number: US-SANOFI-AVENTIS-2010SA067724

PATIENT
  Age: 77 Year
  Sex: Male
  Weight: 90.9 kg

DRUGS (4)
  1. PLAVIX [Suspect]
     Route: 048
     Dates: start: 20090423
  2. ASPIRIN [Concomitant]
     Dates: start: 20070423
  3. CRESTOR [Concomitant]
     Dates: start: 19800101
  4. METOPROLOL [Concomitant]
     Indication: BLOOD PRESSURE
     Dates: start: 20070423, end: 20100701

REACTIONS (1)
  - ATRIAL FIBRILLATION [None]
